FAERS Safety Report 5427835-0 (Version None)
Quarter: 2007Q3

REPORT INFORMATION
  Report Type: 
  Country: None (occurrence: None)
  Receive Date: 20070828
  Receipt Date: 20070815
  Transmission Date: 20080115
  Serious: Yes (Other)
  Sender: FDA-Public Use
  Company Number: US-ELI_LILLY_AND_COMPANY-US200708003207

PATIENT
  Age: 68 Year
  Sex: Male

DRUGS (16)
  1. FORTEO [Suspect]
     Dates: start: 20030101, end: 20050101
  2. FORTEO [Suspect]
     Dates: start: 20070101
  3. OMEPRAZOLE [Concomitant]
     Indication: ULCER
     Dosage: 20 MG, UNK
  4. CILOSTAZOL [Concomitant]
     Indication: INTERMITTENT CLAUDICATION
     Dosage: 100 MG, UNK
  5. DIOVAN [Concomitant]
     Indication: HYPERTENSION
     Dosage: 40 MG, UNK
  6. TRAMADOL HCL [Concomitant]
     Indication: PAIN
  7. ARIMIDEX [Concomitant]
  8. CALTRATE [Concomitant]
     Indication: BONE DISORDER
  9. FEXOFENADINE [Concomitant]
     Indication: DEMENTIA ALZHEIMER'S TYPE
  10. VITAMIN D [Concomitant]
  11. LORATADINE [Concomitant]
  12. DHEA [Concomitant]
     Indication: SUPPLEMENTATION THERAPY
  13. OMEGA 3 [Concomitant]
     Indication: SUPPLEMENTATION THERAPY
  14. ALBUTEROL [Concomitant]
     Indication: BRONCHIAL DISORDER
     Dosage: UNK, AS NEEDED
  15. CENTRUM SILVER [Concomitant]
  16. ECOTRIN [Concomitant]
     Indication: CARDIAC DISORDER

REACTIONS (1)
  - PROSTATE CANCER [None]
